FAERS Safety Report 6511155-7 (Version None)
Quarter: 2009Q4

REPORT INFORMATION
  Report Type: 
  Country: None (occurrence: None)
  Receive Date: 20091222
  Receipt Date: 20091211
  Transmission Date: 20100525
  Serious: Yes (Hospitalization, Other)
  Sender: FDA-Public Use
  Company Number: PL-ELI_LILLY_AND_COMPANY-PL200911002281

PATIENT
  Sex: Female
  Weight: 62 kg

DRUGS (11)
  1. PEMETREXED [Suspect]
     Indication: NON-SMALL CELL LUNG CANCER
     Dosage: 500 MG/M2=865 MG, EVERY 3 WEEKS
     Route: 065
     Dates: start: 20090917
  2. CISPLATIN [Suspect]
     Indication: NON-SMALL CELL LUNG CANCER
     Dosage: 75 MG/M2=129.75 MG, EVERY 3 WEEKS
     Route: 065
     Dates: start: 20090917
  3. AG-013736(AXITINIB) [Suspect]
     Indication: NON-SMALL CELL LUNG CANCER
     Dosage: 5 MG, UNKNOWN
     Route: 048
     Dates: start: 20090917, end: 20091007
  4. AG-013736(AXITINIB) [Suspect]
     Dosage: 7 MG, 2/D
     Route: 048
     Dates: start: 20091008, end: 20091014
  5. ZOPLICONE [Concomitant]
     Indication: INSOMNIA
     Dosage: 7.5 MG, UNK
     Dates: start: 20090831
  6. LEVOTHYROXINE SODIUM [Concomitant]
     Indication: HYPOTHYROIDISM
     Dosage: UNK, UNK
     Dates: start: 20050101
  7. FOLINIC ACID [Concomitant]
     Indication: PREMEDICATION
     Dosage: 0.4 MG, DAILY (1/D)
     Dates: start: 20090904
  8. OMEPRAZOLE [Concomitant]
     Indication: PROPHYLAXIS OF NAUSEA AND VOMITING
     Dates: start: 20091007
  9. DEXAMETHASONE TAB [Concomitant]
     Indication: PREMEDICATION
     Dates: start: 20090915
  10. ONDANSETRON [Concomitant]
     Indication: PROPHYLAXIS OF NAUSEA AND VOMITING
     Dates: start: 20090916
  11. VITAMIN B-12 [Concomitant]
     Indication: PREMEDICATION
     Dosage: UNK, UNK
     Dates: start: 20090907, end: 20090907

REACTIONS (2)
  - HYPERBILIRUBINAEMIA [None]
  - VOMITING [None]
